FAERS Safety Report 13849893 (Version 2)
Quarter: 2018Q3

REPORT INFORMATION
  Report Type: Spontaneous
  Country: US (occurrence: US)
  Receive Date: 20170809
  Receipt Date: 20180921
  Transmission Date: 20181010
  Serious: Yes (Life-Threatening)
  Sender: FDA-Public Use
  Company Number: US-IGSA-GTI004512

PATIENT
  Age: 65 Year
  Sex: Female

DRUGS (2)
  1. ALBUKED [Suspect]
     Active Substance: ALBUMIN HUMAN
     Indication: PROCEDURAL HYPOTENSION
     Dosage: 12.5 G, UNK
     Route: 042
     Dates: start: 20160817, end: 20160817
  2. ANAESTHETICS [Concomitant]
     Active Substance: UNSPECIFIED INGREDIENT
     Dosage: UNK
     Dates: start: 20160817

REACTIONS (1)
  - Anaphylactic reaction [Recovered/Resolved]

NARRATIVE: CASE EVENT DATE: 20160817
